FAERS Safety Report 6554509-5 (Version None)
Quarter: 2010Q1

REPORT INFORMATION
  Report Type: 
  Country: None (occurrence: None)
  Receive Date: 20100127
  Receipt Date: 20100114
  Transmission Date: 20100710
  Serious: Yes (Hospitalization)
  Sender: FDA-Public Use
  Company Number: PHEH2010US00794

PATIENT
  Sex: Male

DRUGS (1)
  1. ZOMETA [Suspect]
     Indication: MULTIPLE MYELOMA

REACTIONS (1)
  - PANCREAS INFECTION [None]
